FAERS Safety Report 7419745-4 (Version None)
Quarter: 2011Q2

REPORT INFORMATION
  Report Type: 
  Country: None (occurrence: None)
  Receive Date: 20110413
  Receipt Date: 20110413
  Transmission Date: 20111010
  Serious: No
  Sender: FDA-Public Use
  Company Number: None

PATIENT
  Sex: Female
  Weight: 142.4295 kg

DRUGS (1)
  1. ORENCIA [Suspect]
     Dosage: 1000 MG Q MONTH IV
     Route: 042

REACTIONS (1)
  - INFLUENZA LIKE ILLNESS [None]
